FAERS Safety Report 19809568 (Version 1)
Quarter: 2021Q3

REPORT INFORMATION
  Report Type: Other
  Country: US (occurrence: US)
  Receive Date: 20210908
  Receipt Date: 20210908
  Transmission Date: 20211014
  Serious: No
  Sender: FDA-Public Use
  Company Number: US-ROCHE-2683567

PATIENT
  Age: 41 Year
  Sex: Female

DRUGS (3)
  1. LORLATINIB [Concomitant]
     Active Substance: LORLATINIB
  2. ALECTINIB. [Suspect]
     Active Substance: ALECTINIB
     Indication: PANCREATIC CARCINOMA
     Route: 065
  3. FOLFIRINOX [Concomitant]
     Active Substance: FLUOROURACIL\IRINOTECAN\LEUCOVORIN\OXALIPLATIN

REACTIONS (1)
  - Drug resistance [Unknown]
